FAERS Safety Report 20548586 (Version 1)
Quarter: 2022Q1

REPORT INFORMATION
  Report Type: Spontaneous
  Country: US (occurrence: US)
  Receive Date: 20220303
  Receipt Date: 20220303
  Transmission Date: 20220423
  Serious: No
  Sender: FDA-Public Use
  Company Number: US-JNJFOC-20220248792

PATIENT
  Age: 64 Year
  Sex: Female

DRUGS (1)
  1. WOMENS ROGAINE UNSCENTED [Suspect]
     Active Substance: MINOXIDIL
     Indication: Alopecia
     Dosage: MEASURED OUT AS ON THE CAN
     Route: 065
     Dates: start: 202112

REACTIONS (1)
  - Hypersensitivity [Recovered/Resolved]
